FAERS Safety Report 15849672 (Version 2)
Quarter: 2019Q1

REPORT INFORMATION
  Report Type: Spontaneous
  Country: US (occurrence: US)
  Receive Date: 20190121
  Receipt Date: 20190204
  Transmission Date: 20190417
  Serious: Yes (Other)
  Sender: FDA-Public Use
  Company Number: US-SEBELA IRELAND LIMITED-2019SEB00008

PATIENT
  Age: 41 Year
  Sex: Female
  Weight: 90.7 kg

DRUGS (16)
  1. LOSARTAN. [Concomitant]
     Active Substance: LOSARTAN
  2. LORAZEPAM. [Concomitant]
     Active Substance: LORAZEPAM
  3. ALLOPURINOL. [Concomitant]
     Active Substance: ALLOPURINOL
  4. DOXYCYCLINE. [Concomitant]
     Active Substance: DOXYCYCLINE
  5. ^COLSYERS^ [Concomitant]
  6. LASIX [Concomitant]
     Active Substance: FUROSEMIDE
  7. AZELASTINE. [Concomitant]
     Active Substance: AZELASTINE HYDROCHLORIDE
  8. AMOXICILLIN. [Concomitant]
     Active Substance: AMOXICILLIN
  9. UNSPECIFIED ANTI-DIZZY PILL [Concomitant]
  10. IMURAN [Suspect]
     Active Substance: AZATHIOPRINE
     Indication: HEART TRANSPLANT
     Dosage: 25 MG, 1X/DAY
     Route: 048
     Dates: start: 19930401
  11. ZYRTEC [Concomitant]
     Active Substance: CETIRIZINE HYDROCHLORIDE
  12. ^BRUSTASIS^ [Concomitant]
  13. ONDANSETRON [Concomitant]
     Active Substance: ONDANSETRON
  14. XOPENEX [Concomitant]
     Active Substance: LEVALBUTEROL HYDROCHLORIDE
  15. FLOVENT [Concomitant]
     Active Substance: FLUTICASONE PROPIONATE
  16. SANDIMMUNE [Concomitant]
     Active Substance: CYCLOSPORINE

REACTIONS (2)
  - Off label use [Not Recovered/Not Resolved]
  - Arrhythmia [Unknown]

NARRATIVE: CASE EVENT DATE: 19930401
